FAERS Safety Report 24843559 (Version 1)
Quarter: 2025Q1

REPORT INFORMATION
  Report Type: Spontaneous
  Country: TR (occurrence: TR)
  Receive Date: 20250115
  Receipt Date: 20250115
  Transmission Date: 20250408
  Serious: Yes (Other)
  Sender: AMGEN
  Company Number: TR-AMGEN-TURSP2025002028

PATIENT
  Age: 54 Year
  Sex: Male

DRUGS (6)
  1. FILGRASTIM [Suspect]
     Active Substance: FILGRASTIM
     Indication: Autologous haematopoietic stem cell transplant
     Route: 065
  2. CARMUSTINE [Concomitant]
     Active Substance: CARMUSTINE
     Route: 065
  3. ETOPOSIDE [Concomitant]
     Active Substance: ETOPOSIDE
     Route: 065
  4. CYTARABINE [Concomitant]
     Active Substance: CYTARABINE
     Route: 065
  5. MELPHALAN [Concomitant]
     Active Substance: MELPHALAN
  6. PLERIXAFOR [Concomitant]
     Active Substance: PLERIXAFOR
     Route: 065

REACTIONS (1)
  - Graft versus host disease in skin [Recovered/Resolved]
